FAERS Safety Report 15927186 (Version 4)
Quarter: 2019Q2

REPORT INFORMATION
  Report Type: Spontaneous
  Country: US (occurrence: US)
  Receive Date: 20190206
  Receipt Date: 20190520
  Transmission Date: 20190711
  Serious: Yes (Other)
  Sender: FDA-Public Use
  Company Number: US-NOVOPROD-644899

PATIENT
  Age: 58 Year
  Sex: Male
  Weight: 78.01 kg

DRUGS (1)
  1. VICTOZA [Suspect]
     Active Substance: LIRAGLUTIDE
     Indication: TYPE 2 DIABETES MELLITUS
     Dosage: 1.8 MG, QD
     Route: 058
     Dates: start: 2011

REACTIONS (1)
  - Amyloidosis [Recovering/Resolving]

NARRATIVE: CASE EVENT DATE: 2016
